FAERS Safety Report 12483078 (Version 1)
Quarter: 2016Q2

REPORT INFORMATION
  Report Type: Report from Study
  Country: US (occurrence: US)
  Receive Date: 20160620
  Receipt Date: 20160620
  Transmission Date: 20160815
  Serious: No
  Sender: FDA-Public Use
  Company Number: US-AMGEN-USASL2016077349

PATIENT
  Age: 49 Year
  Sex: Male

DRUGS (1)
  1. ENBREL [Suspect]
     Active Substance: ETANERCEPT
     Indication: ANKYLOSING SPONDYLITIS
     Dosage: 50 MG, QWK
     Route: 065

REACTIONS (7)
  - Drug dose omission [Unknown]
  - Musculoskeletal stiffness [Unknown]
  - Pain [Unknown]
  - Memory impairment [Unknown]
  - Neck pain [Unknown]
  - Back pain [Unknown]
  - Tenderness [Unknown]
